FAERS Safety Report 4831853-0 (Version None)
Quarter: 2005Q4

REPORT INFORMATION
  Report Type: 
  Country: None (occurrence: None)
  Receive Date: 20051118
  Receipt Date: 20051107
  Transmission Date: 20060501
  Serious: Yes (Hospitalization)
  Sender: FDA-Public Use
  Company Number: 2005UW16899

PATIENT
  Age: 59 Year
  Sex: Male

DRUGS (9)
  1. CRESTOR [Suspect]
     Route: 048
     Dates: start: 20040101
  2. ALCOHOL [Suspect]
  3. IV CONTRAST [Suspect]
  4. TOPROL-XL [Concomitant]
     Route: 048
  5. NORVASC [Concomitant]
  6. DITROPAN [Concomitant]
  7. DIOVAN [Concomitant]
  8. ASPIRIN [Concomitant]
  9. UNKNOWN MEDICATIONS NOT REPORTED [Concomitant]

REACTIONS (19)
  - ANAEMIA [None]
  - ATELECTASIS [None]
  - BLOOD ALCOHOL INCREASED [None]
  - CONVULSION [None]
  - DRUG SCREEN POSITIVE [None]
  - IODINE ALLERGY [None]
  - LABORATORY TEST INTERFERENCE [None]
  - MENTAL STATUS CHANGES [None]
  - MOUTH ULCERATION [None]
  - NAUSEA [None]
  - NEUROLEPTIC MALIGNANT SYNDROME [None]
  - PETECHIAE [None]
  - PYREXIA [None]
  - RENAL FAILURE ACUTE [None]
  - RESPIRATORY FAILURE [None]
  - RHABDOMYOLYSIS [None]
  - STAPHYLOCOCCAL INFECTION [None]
  - URINARY RETENTION [None]
  - VOMITING [None]
